FAERS Safety Report 15567545 (Version 1)
Quarter: 2018Q4

REPORT INFORMATION
  Report Type: Spontaneous
  Country: US (occurrence: US)
  Receive Date: 20181030
  Receipt Date: 20181030
  Transmission Date: 20190205
  Serious: Yes (Other)
  Sender: FDA-Public Use
  Company Number: US-THE MENTHOLATUM COMPANY-2058235

PATIENT
  Age: 49 Year
  Sex: Female
  Weight: 65.91 kg

DRUGS (1)
  1. ROHTO COOL MAX [Suspect]
     Active Substance: NAPHAZOLINE HYDROCHLORIDE\POLYSORBATE 80
     Route: 047
     Dates: start: 20181021, end: 20181021

REACTIONS (1)
  - Eye injury [Not Recovered/Not Resolved]

NARRATIVE: CASE EVENT DATE: 20181021
